FAERS Safety Report 8289752-0 (Version None)
Quarter: 2012Q2

REPORT INFORMATION
  Report Type: 
  Country: None (occurrence: None)
  Receive Date: 20120417
  Receipt Date: 20120411
  Transmission Date: 20120825
  Serious: No
  Sender: FDA-Public Use
  Company Number: US-PFIZER INC-2012080839

PATIENT
  Sex: Male

DRUGS (2)
  1. CELEBREX [Concomitant]
  2. NEURONTIN [Suspect]
     Dosage: UNK

REACTIONS (5)
  - IRRITABILITY [None]
  - PAIN [None]
  - NERVOUSNESS [None]
  - MOOD SWINGS [None]
  - ANXIETY [None]
